FAERS Safety Report 5065632-9 (Version None)
Quarter: 2006Q3

REPORT INFORMATION
  Report Type: 
  Country: None (occurrence: None)
  Receive Date: 20060725
  Receipt Date: 20060712
  Transmission Date: 20061208
  Serious: Yes (Hospitalization)
  Sender: FDA-Public Use
  Company Number: FR200607001723

PATIENT
  Age: 40 Year
  Sex: Male
  Weight: 71 kg

DRUGS (8)
  1. UMULINE (HUMAN INSULIN (RDNA ORIGIN) UNKNOWN FORMULATION) UNKNOWN [Suspect]
     Dosage: SUBCUTANEOUS
     Route: 058
     Dates: start: 20060531, end: 20060601
  2. ORBENIN CAP [Concomitant]
  3. GENTAMICIN [Concomitant]
  4. LEVONOX (HEPARIN-FRACTION, SODIUM SALT) [Concomitant]
  5. MIDAZOLAM HCL [Concomitant]
  6. FENTANYL [Concomitant]
  7. ESOMEPRAZOLE MAGNESIUM [Concomitant]
  8. TERCIAN (CYAMEMAZINE) [Concomitant]

REACTIONS (4)
  - CONDITION AGGRAVATED [None]
  - NEPHRITIS INTERSTITIAL [None]
  - RASH MACULO-PAPULAR [None]
  - RENAL FAILURE [None]
